FAERS Safety Report 8303067-3 (Version None)
Quarter: 2012Q2

REPORT INFORMATION
  Report Type: 
  Country: None (occurrence: None)
  Receive Date: 20120422
  Receipt Date: 20120410
  Transmission Date: 20120825
  Serious: Yes (Other)
  Sender: FDA-Public Use
  Company Number: TR-AMGEN-TURSP2012008084

PATIENT
  Age: 49 Year
  Sex: Female

DRUGS (1)
  1. ENBREL [Suspect]
     Indication: RHEUMATOID ARTHRITIS
     Dosage: 50 MG, QWK
     Route: 058
     Dates: start: 20110715, end: 20111101

REACTIONS (4)
  - POST PROCEDURAL COMPLICATION [None]
  - KNEE OPERATION [None]
  - PROCEDURAL PAIN [None]
  - ARTHRALGIA [None]
